FAERS Safety Report 9674835 (Version 1)
Quarter: 2013Q4

REPORT INFORMATION
  Report Type: Report from Study
  Country: US (occurrence: US)
  Receive Date: 20131107
  Receipt Date: 20131107
  Transmission Date: 20140711
  Serious: Yes (Other)
  Sender: FDA-Public Use
  Company Number: PHEH2013US022955

PATIENT
  Age: 72 Year
  Sex: Female

DRUGS (1)
  1. TOBI PODHALER [Suspect]
     Indication: BRONCHIECTASIS
     Dosage: 112 MG, BID
     Dates: start: 201308, end: 201309

REACTIONS (3)
  - Hypersensitivity [Recovering/Resolving]
  - Tinnitus [Recovering/Resolving]
  - Oropharyngeal pain [Recovering/Resolving]
